FAERS Safety Report 6173819-7 (Version None)
Quarter: 2009Q2

REPORT INFORMATION
  Report Type: 
  Country: None (occurrence: None)
  Receive Date: 20090429
  Receipt Date: 20090429
  Transmission Date: 20091009
  Serious: Yes (Life-Threatening, Hospitalization)
  Sender: FDA-Public Use
  Company Number: None

PATIENT
  Age: 72 Year
  Sex: Female

DRUGS (2)
  1. METHOTREXATE [Suspect]
     Indication: RHEUMATOID ARTHRITIS
     Dosage: 10 MG TWICE DAILY PO
     Route: 048
     Dates: start: 20081212, end: 20081215
  2. PREDNISONE [Concomitant]

REACTIONS (10)
  - ANAEMIA OF CHRONIC DISEASE [None]
  - BRONCHOPULMONARY ASPERGILLOSIS [None]
  - CHILLS [None]
  - INCORRECT DOSE ADMINISTERED [None]
  - MEDICATION ERROR [None]
  - MOUTH ULCERATION [None]
  - OVERDOSE [None]
  - PANCYTOPENIA [None]
  - RASH [None]
  - STOMATITIS [None]
